FAERS Safety Report 16256569 (Version 1)
Quarter: 2019Q2

REPORT INFORMATION
  Report Type: Spontaneous
  Country: US (occurrence: US)
  Receive Date: 20190430
  Receipt Date: 20190430
  Transmission Date: 20190711
  Serious: No
  Sender: FDA-Public Use
  Company Number: US-ABBVIE-18P-163-2405825-00

PATIENT
  Sex: Female
  Weight: 41.31 kg

DRUGS (7)
  1. CREON [Suspect]
     Active Substance: PANCRELIPASE AMYLASE\PANCRELIPASE LIPASE\PANCRELIPASE PROTEASE
     Indication: INTRADUCTAL PROLIFERATIVE BREAST LESION
     Dosage: 3 CAPSULES WITH EACH MEAL AND SNACKS TOTAL ABOUT  12- 15 CAPSULES A DAY
     Route: 048
     Dates: start: 2017, end: 2017
  2. CREON [Suspect]
     Active Substance: PANCRELIPASE AMYLASE\PANCRELIPASE LIPASE\PANCRELIPASE PROTEASE
     Dosage: 2 CAPSULES WITH EACH MEAL AND SNACK EQUAL 10-12 CAPSULES A DAY
     Route: 048
     Dates: start: 2017, end: 2018
  3. CREON [Suspect]
     Active Substance: PANCRELIPASE AMYLASE\PANCRELIPASE LIPASE\PANCRELIPASE PROTEASE
     Dosage: 1-2 CAPSULES A DAY
     Route: 048
     Dates: start: 2018
  4. PROGESTERONE. [Concomitant]
     Active Substance: PROGESTERONE
     Indication: POSTMENOPAUSE
  5. ANORO INHALER [Concomitant]
     Indication: CHRONIC OBSTRUCTIVE PULMONARY DISEASE
  6. ESTRADIOL. [Concomitant]
     Active Substance: ESTRADIOL
     Indication: POSTMENOPAUSE
  7. ARMOUR THYROID [Concomitant]
     Active Substance: THYROID, PORCINE
     Indication: HYPOTHYROIDISM

REACTIONS (4)
  - Constipation [Recovered/Resolved]
  - Weight decreased [Not Recovered/Not Resolved]
  - Diarrhoea [Not Recovered/Not Resolved]
  - Medication error [Not Recovered/Not Resolved]

NARRATIVE: CASE EVENT DATE: 2017
